FAERS Safety Report 4826370-8 (Version None)
Quarter: 2005Q4

REPORT INFORMATION
  Report Type: 
  Country: None (occurrence: None)
  Receive Date: 20051111
  Receipt Date: 20051031
  Transmission Date: 20060501
  Serious: Yes (Other)
  Sender: FDA-Public Use
  Company Number: PHEH2005US12036

PATIENT
  Sex: Female
  Weight: 136 kg

DRUGS (1)
  1. FEMARA [Suspect]
     Dosage: 2.5 MG, QD

REACTIONS (1)
  - ATRIAL FIBRILLATION [None]
